FAERS Safety Report 10092482 (Version 1)
Quarter: 2014Q2

REPORT INFORMATION
  Report Type: Spontaneous
  Country: US (occurrence: US)
  Receive Date: 20140421
  Receipt Date: 20140421
  Transmission Date: 20141212
  Serious: No
  Sender: FDA-Public Use
  Company Number: US-SANOFI-AVENTIS-2013SA032627

PATIENT
  Age: 79 Year
  Sex: Female

DRUGS (2)
  1. ALLEGRA [Suspect]
     Indication: RHINITIS
     Dates: start: 2013
  2. SERTRALINE [Concomitant]

REACTIONS (4)
  - Rash [Not Recovered/Not Resolved]
  - Erythema [Not Recovered/Not Resolved]
  - Anorectal discomfort [Not Recovered/Not Resolved]
  - Anal pruritus [Not Recovered/Not Resolved]
